FAERS Safety Report 17736642 (Version 4)
Quarter: 2020Q3

REPORT INFORMATION
  Report Type: Spontaneous
  Country: CN (occurrence: CN)
  Receive Date: 20200501
  Receipt Date: 20200924
  Transmission Date: 20201104
  Serious: Yes (Hospitalization)
  Sender: FDA-Public Use
  Company Number: CN-CELGENEUS-CHN-20200408184

PATIENT
  Age: 57 Year
  Sex: Male
  Weight: 74 kg

DRUGS (8)
  1. SERPLULIMAB. [Suspect]
     Active Substance: SERPLULIMAB
     Route: 041
     Dates: start: 20200527
  2. ABRAXANE [Suspect]
     Active Substance: PACLITAXEL
     Dosage: 188.6 MILLIGRAM
     Route: 041
     Dates: start: 20200304, end: 20200304
  3. LEVOTHYROXINE SODIUM. [Concomitant]
     Active Substance: LEVOTHYROXINE SODIUM
     Indication: HYPOTHYROIDISM
     Dosage: 25 MILLIGRAM
     Route: 048
     Dates: start: 20191226
  4. SERPLULIMAB. [Suspect]
     Active Substance: SERPLULIMAB
     Dosage: 351 MILLIGRAM
     Route: 041
     Dates: start: 20200304, end: 20200304
  5. SERPLULIMAB. [Suspect]
     Active Substance: SERPLULIMAB
     Indication: SQUAMOUS CELL CARCINOMA
     Dosage: 351 MILLIGRAM
     Route: 041
     Dates: start: 20191224
  6. ABRAXANE [Suspect]
     Active Substance: PACLITAXEL
     Indication: SQUAMOUS CELL CARCINOMA
     Dosage: 188.6 MILLIGRAM
     Route: 041
     Dates: start: 20191224
  7. CARBOPLATIN. [Suspect]
     Active Substance: CARBOPLATIN
     Indication: SQUAMOUS CELL CARCINOMA
     Dosage: 297.6 MILLIGRAM
     Route: 041
     Dates: start: 20191224
  8. CARBOPLATIN. [Suspect]
     Active Substance: CARBOPLATIN
     Dosage: 297.6 MILLIGRAM
     Route: 041
     Dates: start: 20200304, end: 20200304

REACTIONS (1)
  - Immune-mediated nephritis [Recovering/Resolving]

NARRATIVE: CASE EVENT DATE: 20200204
